FAERS Safety Report 18961750 (Version 1)
Quarter: 2021Q1

REPORT INFORMATION
  Report Type: Report from Study
  Country: US (occurrence: US)
  Receive Date: 20210303
  Receipt Date: 20210303
  Transmission Date: 20210420
  Serious: Yes (Hospitalization)
  Sender: FDA-Public Use
  Company Number: US-PFIZER INC-2021184296

PATIENT

DRUGS (28)
  1. LIPITOR [Suspect]
     Active Substance: ATORVASTATIN CALCIUM
     Indication: ANALGESIC THERAPY
     Dosage: UNK
  2. DILANTIN [Interacting]
     Active Substance: PHENYTOIN
     Indication: ANALGESIC THERAPY
     Dosage: UNK
  3. GEODON [Interacting]
     Active Substance: ZIPRASIDONE HYDROCHLORIDE\ZIPRASIDONE MESYLATE
     Indication: ANALGESIC THERAPY
     Dosage: UNK
  4. RAPAMYCIN [Interacting]
     Active Substance: SIROLIMUS
     Indication: ANALGESIC THERAPY
     Dosage: UNK
  5. CRESTOR [Interacting]
     Active Substance: ROSUVASTATIN CALCIUM
     Indication: ANALGESIC THERAPY
     Dosage: UNK
  6. ZETIA [Interacting]
     Active Substance: EZETIMIBE
     Indication: ANALGESIC THERAPY
     Dosage: UNK
  7. BACTRIM [Interacting]
     Active Substance: SULFAMETHOXAZOLE\TRIMETHOPRIM
     Indication: ANALGESIC THERAPY
     Dosage: UNK
  8. PROGRAF [Interacting]
     Active Substance: TACROLIMUS
     Indication: ANALGESIC THERAPY
     Dosage: UNK
  9. NEURONTIN [Interacting]
     Active Substance: GABAPENTIN
     Indication: ANALGESIC THERAPY
     Dosage: UNK
  10. ZOSYN [Interacting]
     Active Substance: PIPERACILLIN SODIUM\TAZOBACTAM SODIUM
     Indication: ANALGESIC THERAPY
     Dosage: UNK
  11. KLONOPIN [Interacting]
     Active Substance: CLONAZEPAM
     Indication: ANALGESIC THERAPY
     Dosage: UNK
  12. ZIAGEN [Interacting]
     Active Substance: ABACAVIR SULFATE
     Indication: ANALGESIC THERAPY
     Dosage: UNK
  13. TEGRETOL [Interacting]
     Active Substance: CARBAMAZEPINE
     Indication: ANALGESIC THERAPY
     Dosage: UNK
  14. ZYPREXA [Interacting]
     Active Substance: OLANZAPINE
     Indication: ANALGESIC THERAPY
     Dosage: UNK
  15. UNASYN [Interacting]
     Active Substance: AMPICILLIN SODIUM\SULBACTAM SODIUM
     Indication: ANALGESIC THERAPY
     Dosage: UNK
  16. COGENTIN [Interacting]
     Active Substance: BENZTROPINE MESYLATE
     Indication: ANALGESIC THERAPY
  17. KEFLEX [Interacting]
     Active Substance: CEPHALEXIN
     Indication: ANALGESIC THERAPY
     Dosage: UNK
  18. ARICEPT [Interacting]
     Active Substance: DONEPEZIL HYDROCHLORIDE
     Indication: ANALGESIC THERAPY
     Dosage: UNK
  19. TRICOR [ADENOSINE] [Interacting]
     Active Substance: ADENOSINE
     Indication: ANALGESIC THERAPY
     Dosage: UNK
  20. ABILIFY [Interacting]
     Active Substance: ARIPIPRAZOLE
     Indication: ANALGESIC THERAPY
     Dosage: UNK
  21. THORAZINE [Interacting]
     Active Substance: CHLORPROMAZINE
     Indication: ANALGESIC THERAPY
     Dosage: UNK
  22. SEROQUEL [Interacting]
     Active Substance: QUETIAPINE FUMARATE
     Indication: ANALGESIC THERAPY
     Dosage: UNK
  23. DEPAKOTE [Interacting]
     Active Substance: DIVALPROEX SODIUM
     Indication: ANALGESIC THERAPY
     Dosage: UNK
  24. CITALOPRAM [Interacting]
     Active Substance: CITALOPRAM HYDROBROMIDE
     Indication: ANALGESIC THERAPY
     Dosage: UNK
  25. PLAVIX [Interacting]
     Active Substance: CLOPIDOGREL BISULFATE
     Indication: ANALGESIC THERAPY
     Dosage: UNK
  26. LEXAPRO [Interacting]
     Active Substance: ESCITALOPRAM OXALATE
     Indication: ANALGESIC THERAPY
     Dosage: UNK
  27. VALCYTE [Interacting]
     Active Substance: VALGANCICLOVIR HYDROCHLORIDE
     Indication: ANALGESIC THERAPY
     Dosage: UNK
  28. ATIVAN [Interacting]
     Active Substance: LORAZEPAM
     Indication: ANALGESIC THERAPY
     Dosage: UNK

REACTIONS (3)
  - Rhabdomyolysis [Unknown]
  - Agranulocytosis [Unknown]
  - Drug interaction [Unknown]
